FAERS Safety Report 16775649 (Version 14)
Quarter: 2022Q2

REPORT INFORMATION
  Report Type: Spontaneous
  Country: IN (occurrence: IN)
  Receive Date: 20190905
  Receipt Date: 20220501
  Transmission Date: 20220721
  Serious: Yes (Hospitalization, Other)
  Sender: FDA-Public Use
  Company Number: IN-PFIZER INC-2019348065

PATIENT
  Age: 67 Year
  Sex: Male
  Weight: 93 kg

DRUGS (3)
  1. CRIZOTINIB [Suspect]
     Active Substance: CRIZOTINIB
     Indication: Non-small cell lung cancer
     Dosage: 250 MG, 2X/DAY
     Route: 048
     Dates: start: 201811
  2. CRIZOTINIB [Suspect]
     Active Substance: CRIZOTINIB
     Dosage: 250 MG, 2X/DAY
     Route: 048
     Dates: start: 20181220, end: 20220408
  3. CALCIMAX FORTE [Concomitant]
     Dosage: 1 G, DAILY FOR 4 MONTHS

REACTIONS (19)
  - Peripheral swelling [Unknown]
  - Diabetes mellitus [Unknown]
  - Cellulitis [Unknown]
  - Oesophageal compression [Unknown]
  - Blood pressure increased [Unknown]
  - Abdominal pain upper [Unknown]
  - Fall [Unknown]
  - Musculoskeletal pain [Unknown]
  - Asthenia [Unknown]
  - Pain in extremity [Unknown]
  - Pleural effusion [Recovered/Resolved]
  - Lung opacity [Recovered/Resolved]
  - Prostatomegaly [Unknown]
  - Dry mouth [Unknown]
  - Neoplasm progression [Unknown]
  - Weight decreased [Unknown]
  - Blood glucose increased [Unknown]
  - Blood cholesterol increased [Unknown]
  - Dysphagia [Unknown]

NARRATIVE: CASE EVENT DATE: 20200630
